FAERS Safety Report 4959542-2 (Version None)
Quarter: 2006Q1

REPORT INFORMATION
  Report Type: 
  Country: None (occurrence: None)
  Receive Date: 20060331
  Receipt Date: 20060216
  Transmission Date: 20060701
  Serious: Yes (Death, Life-Threatening, Hospitalization)
  Sender: FDA-Public Use
  Company Number: FR-GLAXOSMITHKLINE-B0412667A

PATIENT
  Age: 43 Year
  Sex: Female
  Weight: 160 kg

DRUGS (11)
  1. ZANTAC [Suspect]
     Dosage: 50MG SINGLE DOSE
     Route: 042
     Dates: start: 20060113, end: 20060113
  2. ACUPAN [Suspect]
     Dosage: 20MG SINGLE DOSE
     Route: 042
     Dates: start: 20060113, end: 20060113
  3. DROLEPTAN [Suspect]
     Dosage: 1.25MG SINGLE DOSE
     Route: 042
     Dates: start: 20060113, end: 20060113
  4. DALACINE [Suspect]
     Indication: PROPHYLAXIS
     Dosage: 600MG SINGLE DOSE
     Route: 042
     Dates: start: 20060113, end: 20060113
  5. DIPRIVAN [Concomitant]
     Dosage: 130MG SINGLE DOSE
     Route: 042
     Dates: start: 20060113, end: 20060113
  6. SUFENTA [Concomitant]
     Dosage: 15UNIT SINGLE DOSE
     Route: 042
     Dates: start: 20060113, end: 20060113
  7. GENTAMYCIN SULFATE [Concomitant]
     Indication: PROPHYLAXIS
     Dosage: 120MG SINGLE DOSE
     Dates: start: 20060113, end: 20060113
  8. PROFENID [Concomitant]
     Dosage: 100MG SINGLE DOSE
     Route: 042
     Dates: start: 20060113, end: 20060113
  9. SYNTOCINON [Concomitant]
     Dosage: 10IU SINGLE DOSE
     Route: 042
     Dates: start: 20060113, end: 20060113
  10. PERFALGAN [Concomitant]
     Dosage: 1G SINGLE DOSE
     Route: 042
     Dates: start: 20060113, end: 20060113
  11. SEVORANE [Concomitant]
     Route: 065
     Dates: start: 20060113, end: 20060113

REACTIONS (22)
  - ABDOMINAL PAIN [None]
  - ACUTE PULMONARY OEDEMA [None]
  - AGITATION [None]
  - ANOXIC ENCEPHALOPATHY [None]
  - AV DISSOCIATION [None]
  - BRADYCARDIA [None]
  - BRAIN DEATH [None]
  - CARDIAC ARREST [None]
  - CIRCULATORY COLLAPSE [None]
  - CONVULSION [None]
  - ELECTROCARDIOGRAM QRS COMPLEX PROLONGED [None]
  - ELECTROMECHANICAL DISSOCIATION [None]
  - FEELING COLD [None]
  - HYPOTENSION [None]
  - LOSS OF CONSCIOUSNESS [None]
  - MYDRIASIS [None]
  - NAUSEA [None]
  - OPHTHALMOPLEGIA [None]
  - PULSE ABSENT [None]
  - VENTRICULAR DYSFUNCTION [None]
  - VENTRICULAR HYPOKINESIA [None]
  - VENTRICULAR TACHYCARDIA [None]
